FAERS Safety Report 20601210 (Version 1)
Quarter: 2022Q1

REPORT INFORMATION
  Report Type: Spontaneous
  Country: FR (occurrence: FR)
  Receive Date: 20220316
  Receipt Date: 20220316
  Transmission Date: 20220424
  Serious: Yes (Life-Threatening, Other)
  Sender: FDA-Public Use
  Company Number: None

PATIENT
  Age: 62 Year
  Sex: Male
  Weight: 93 kg

DRUGS (9)
  1. DEXAMETHASONE [Suspect]
     Active Substance: DEXAMETHASONE
     Indication: Prophylaxis of nausea and vomiting
     Dosage: 8 MILLIGRAM, TOTAL
     Route: 042
     Dates: start: 20211105, end: 20211105
  2. ROPIVACAINE [Suspect]
     Active Substance: ROPIVACAINE
     Indication: Local anaesthesia
     Dosage: 150 MILLIGRAM, TOTAL
     Route: 051
  3. AMOXICILLIN\CLAVULANIC ACID [Suspect]
     Active Substance: AMOXICILLIN\CLAVULANIC ACID
     Indication: Infection prophylaxis
     Dosage: 2 GRAM, TOTAL
     Route: 042
     Dates: start: 20211105, end: 20211105
  4. ACETAMINOPHEN [Suspect]
     Active Substance: ACETAMINOPHEN
     Indication: Pain prophylaxis
     Dosage: 1 GRAM, TOTAL
     Route: 042
     Dates: start: 20211105, end: 20211105
  5. CARBOCAINE [Suspect]
     Active Substance: MEPIVACAINE HYDROCHLORIDE
     Indication: Local anaesthesia
     Dosage: 30 MILLIGRAM, TOTAL
     Route: 051
     Dates: start: 20211105, end: 20211105
  6. TRAMADOL [Concomitant]
     Active Substance: TRAMADOL
     Dosage: UNK
  7. METFORMIN HYDROCHLORIDE [Concomitant]
     Active Substance: METFORMIN HYDROCHLORIDE
     Dosage: UNK
  8. SIMVASTATIN [Concomitant]
     Active Substance: SIMVASTATIN
     Dosage: UNK
  9. SILODOSIN [Concomitant]
     Active Substance: SILODOSIN
     Dosage: UNK

REACTIONS (1)
  - Anaphylactic shock [Recovered/Resolved]

NARRATIVE: CASE EVENT DATE: 20211105
